FAERS Safety Report 16849416 (Version 1)
Quarter: 2019Q4

REPORT INFORMATION
  Report Type: Spontaneous
  Country: US (occurrence: US)
  Receive Date: 20190924
  Receipt Date: 20190924
  Transmission Date: 20200122
  Serious: Yes (Disabling)
  Sender: FDA-Public Use
  Company Number: None

PATIENT
  Age: 42 Year
  Sex: Female
  Weight: 54 kg

DRUGS (1)
  1. SERTRALINE [Suspect]
     Active Substance: SERTRALINE HYDROCHLORIDE
     Indication: ANXIETY
     Route: 048

REACTIONS (7)
  - Discomfort [None]
  - Nausea [None]
  - Vomiting [None]
  - Paraesthesia [None]
  - Pain [None]
  - Emotional distress [None]
  - Feeling abnormal [None]

NARRATIVE: CASE EVENT DATE: 20190924
